FAERS Safety Report 14337030 (Version 1)
Quarter: 2017Q4

REPORT INFORMATION
  Report Type: Spontaneous
  Country: US (occurrence: US)
  Receive Date: 20171228
  Receipt Date: 20171228
  Transmission Date: 20180321
  Serious: Yes (Disabling)
  Sender: FDA-Public Use
  Company Number: None

PATIENT
  Sex: Male
  Weight: 87.75 kg

DRUGS (7)
  1. CLOPIDOGREL [Concomitant]
     Active Substance: CLOPIDOGREL BISULFATE
  2. HYDROXYCHLORQUINE [Suspect]
     Active Substance: HYDROXYCHLOROQUINE
     Indication: ARTHRITIS
     Dosage: ?          QUANTITY:60 TABLET(S);?
     Route: 048
     Dates: start: 20171111, end: 20171124
  3. METOPROLOL SUCC ER [Concomitant]
     Active Substance: METOPROLOL SUCCINATE
  4. ATORVASTATIN [Concomitant]
     Active Substance: ATORVASTATIN
  5. ISOSORBIDE MN ER [Concomitant]
     Active Substance: ISOSORBIDE
  6. HYDROXYCHLORQUINE [Suspect]
     Active Substance: HYDROXYCHLOROQUINE
     Indication: PERIPHERAL SWELLING
     Dosage: ?          QUANTITY:60 TABLET(S);?
     Route: 048
     Dates: start: 20171111, end: 20171124
  7. LISINOPRIL-HCTZ [Concomitant]
     Active Substance: HYDROCHLOROTHIAZIDE\LISINOPRIL

REACTIONS (8)
  - Fatigue [None]
  - Decreased appetite [None]
  - Hyperhidrosis [None]
  - Tremor [None]
  - Nausea [None]
  - Vision blurred [None]
  - Diarrhoea [None]
  - Chest pain [None]

NARRATIVE: CASE EVENT DATE: 20171224
